FAERS Safety Report 21445009 (Version 2)
Quarter: 2022Q4

REPORT INFORMATION
  Report Type: Spontaneous
  Country: US (occurrence: US)
  Receive Date: 20221012
  Receipt Date: 20221114
  Transmission Date: 20230113
  Serious: Yes (Other)
  Sender: FDA-Public Use
  Company Number: US-JNJFOC-20220961668

PATIENT
  Sex: Female

DRUGS (3)
  1. TYLENOL [Suspect]
     Active Substance: ACETAMINOPHEN
     Indication: Myalgia
     Dosage: STARTED THREE YEARS AGO
     Route: 065
     Dates: start: 2019
  2. TYLENOL [Suspect]
     Active Substance: ACETAMINOPHEN
     Indication: Headache
     Dosage: STARTED THREE YEARS AGO
     Route: 065
     Dates: start: 2019
  3. LAMICTAL [Concomitant]
     Active Substance: LAMOTRIGINE
     Indication: Product used for unknown indication
     Route: 065

REACTIONS (5)
  - Autoimmune disorder [Unknown]
  - Product contamination physical [Unknown]
  - Suspected counterfeit product [Unknown]
  - Off label use [Unknown]
  - Skin laceration [Unknown]

NARRATIVE: CASE EVENT DATE: 20190101
